FAERS Safety Report 20829601 (Version 1)
Quarter: 2022Q2

REPORT INFORMATION
  Report Type: Report from Study
  Country: US (occurrence: US)
  Receive Date: 20220513
  Receipt Date: 20220513
  Transmission Date: 20220720
  Serious: Yes (Hospitalization)
  Sender: FDA-Public Use
  Company Number: US-ABBVIE-22P-163-4389514-00

PATIENT
  Age: 77 Year
  Sex: Male
  Weight: 95.5 kg

DRUGS (5)
  1. IBRUTINIB [Suspect]
     Active Substance: IBRUTINIB
     Indication: Chronic lymphocytic leukaemia
     Dosage: FOR 15 CYCLES
     Route: 048
     Dates: start: 20211116, end: 20220404
  2. IBRUTINIB [Suspect]
     Active Substance: IBRUTINIB
     Dosage: FOR 15 CYCLES
     Route: 048
     Dates: start: 20220405, end: 20220418
  3. IBRUTINIB [Suspect]
     Active Substance: IBRUTINIB
     Dosage: FOR 15 CYCLES
     Route: 048
     Dates: start: 20220426
  4. FLUCONAZOLE [Concomitant]
     Active Substance: FLUCONAZOLE
     Indication: Laryngitis
  5. OBINUTUZUMAB [Concomitant]
     Active Substance: OBINUTUZUMAB
     Indication: Chronic lymphocytic leukaemia
     Dosage: 100 MG ON C1D1; 900 MG ON C1D2; 1000 MG ON C1D8 + C1D15, C2-6D1
     Route: 042
     Dates: start: 20211116, end: 20220405

REACTIONS (2)
  - Febrile neutropenia [Recovered/Resolved]
  - Diarrhoea [Recovered/Resolved]

NARRATIVE: CASE EVENT DATE: 20220418
